FAERS Safety Report 25879928 (Version 1)
Quarter: 2025Q4

REPORT INFORMATION
  Report Type: Spontaneous
  Country: EU (occurrence: EU)
  Receive Date: 20251004
  Receipt Date: 20251004
  Transmission Date: 20260117
  Serious: Yes (Hospitalization, Other)
  Sender: AUROBINDO
  Company Number: EU-MLMSERVICE-20200505-2289945-1

PATIENT
  Age: 22 Year
  Sex: Female

DRUGS (10)
  1. DOCETAXEL [Suspect]
     Active Substance: DOCETAXEL
     Indication: Invasive ductal breast carcinoma
     Dosage: 75 MILLIGRAM/SQ. METER, CYCLICAL
     Route: 065
  2. DOXORUBICIN [Suspect]
     Active Substance: DOXORUBICIN
     Indication: Invasive ductal breast carcinoma
     Dosage: 50 MILLIGRAM/SQ. METER, CYCLICAL
     Route: 065
  3. CYCLOPHOSPHAMIDE [Suspect]
     Active Substance: CYCLOPHOSPHAMIDE
     Indication: Invasive ductal breast carcinoma
     Dosage: 600 MILLIGRAM/SQ. METER, CYCLICAL
     Route: 065
  4. CYCLOPHOSPHAMIDE [Suspect]
     Active Substance: CYCLOPHOSPHAMIDE
     Indication: Invasive ductal breast carcinoma
     Dosage: 600 MILLIGRAM/SQ. METER
     Route: 065
  5. PEGFILGRASTIM [Suspect]
     Active Substance: PEGFILGRASTIM
     Indication: Chemotherapy cytokine prophylaxis
     Dosage: UNK(24 HR AFTER CHEMO)
     Route: 065
  6. PEGFILGRASTIM [Suspect]
     Active Substance: PEGFILGRASTIM
     Indication: Prophylaxis
  7. PEGFILGRASTIM [Suspect]
     Active Substance: PEGFILGRASTIM
     Indication: Neutropenia
  8. CYCLOPHOSPHAMIDE [Suspect]
     Active Substance: CYCLOPHOSPHAMIDE
     Indication: Invasive ductal breast carcinoma
     Dosage: UNK
     Route: 065
  9. DOCETAXEL [Suspect]
     Active Substance: DOCETAXEL
  10. DOXORUBICIN [Suspect]
     Active Substance: DOXORUBICIN

REACTIONS (5)
  - Neutropenic colitis [Recovered/Resolved]
  - Constipation [Recovered/Resolved]
  - Drug ineffective [Unknown]
  - Pyrexia [Recovered/Resolved]
  - Neutropenia [Recovered/Resolved]
